FAERS Safety Report 5956460-8 (Version None)
Quarter: 2008Q4

REPORT INFORMATION
  Report Type: 
  Country: None (occurrence: None)
  Receive Date: 20081118
  Receipt Date: 20081107
  Transmission Date: 20090506
  Serious: Yes (Hospitalization, Other)
  Sender: FDA-Public Use
  Company Number: NO-BRISTOL-MYERS SQUIBB COMPANY-14350995

PATIENT
  Age: 74 Year
  Sex: Male

DRUGS (9)
  1. BLINDED: APIXABAN [Suspect]
     Indication: THROMBOSIS PROPHYLAXIS
     Route: 048
     Dates: start: 20080916, end: 20080926
  2. BLINDED: ENOXAPARIN [Suspect]
     Indication: THROMBOSIS PROPHYLAXIS
     Route: 058
     Dates: start: 20080914, end: 20080926
  3. BLINDED: PLACEBO [Suspect]
     Indication: THROMBOSIS PROPHYLAXIS
     Dosage: TAKEN ORALLY FROM 16SEP2008 - 26SEP2008 FOR APIXABAN TAKEN SC FROM 14SEP08 -26SEP08 FOR ENOXAPARIN
     Dates: start: 20080901, end: 20080926
  4. LEVOTHYROXINE SODIUM [Concomitant]
     Dates: start: 19690101
  5. PROSCAR [Concomitant]
     Dates: start: 20080101
  6. DICLOFENAC SODIUM [Concomitant]
     Dates: start: 20080917
  7. TRAMADOL HCL [Concomitant]
     Dates: start: 20080917
  8. ACETAMINOPHEN [Concomitant]
     Dates: start: 20080917
  9. FRAGMIN [Concomitant]
     Dosage: 1 DF= 5000 IE
     Route: 058
     Dates: start: 20080927, end: 20081007

REACTIONS (2)
  - HAEMATOMA [None]
  - INCISION SITE HAEMORRHAGE [None]
